FAERS Safety Report 19634481 (Version 1)
Quarter: 2021Q3

REPORT INFORMATION
  Report Type: Spontaneous
  Country: US (occurrence: US)
  Receive Date: 20210729
  Receipt Date: 20210729
  Transmission Date: 20211014
  Serious: No
  Sender: FDA-Public Use
  Company Number: US-PARATEK PHARMACEUTICALS, INC.-2021PTK00055

PATIENT
  Age: 59 Year
  Sex: Male
  Weight: 81.63 kg

DRUGS (8)
  1. NUZYRA [Suspect]
     Active Substance: OMADACYCLINE
     Indication: MYCOBACTERIAL INFECTION
     Dosage: 300 MG, 1X/DAY
     Route: 048
     Dates: start: 20210403
  2. METFORMIN [Concomitant]
     Active Substance: METFORMIN HYDROCHLORIDE
  3. UNSPECIFIED SULFINAMIDE [Concomitant]
  4. UNSPECIFIED CHOESTEROL MEDICATION [Concomitant]
  5. ^MIFLOXIN^ [Concomitant]
  6. AZITHROMYCIN ANHYDROUS. [Concomitant]
     Active Substance: AZITHROMYCIN ANHYDROUS
  7. UNSPECIFIED BLOOD PRESSURE MEDICATION [Concomitant]
     Active Substance: UNSPECIFIED INGREDIENT
  8. CLOFAZIMINE [Concomitant]
     Active Substance: CLOFAZIMINE

REACTIONS (2)
  - Faeces soft [Not Recovered/Not Resolved]
  - Off label use [Not Recovered/Not Resolved]

NARRATIVE: CASE EVENT DATE: 202104
